FAERS Safety Report 23967400 (Version 1)
Quarter: 2024Q2

REPORT INFORMATION
  Report Type: Spontaneous
  Country: US (occurrence: None)
  Receive Date: 20240612
  Receipt Date: 20240612
  Transmission Date: 20240715
  Serious: No
  Sender: FDA-Public Use
  Company Number: None

PATIENT
  Age: 66 Year
  Sex: Male
  Weight: 126.1 kg

DRUGS (4)
  1. CYTARABINE [Suspect]
     Active Substance: CYTARABINE
  2. SPRYCEL [Concomitant]
     Active Substance: DASATINIB
  3. DEXAMETHASONE [Concomitant]
  4. PREDNISONE [Concomitant]

REACTIONS (7)
  - Vision blurred [None]
  - Dyspnoea [None]
  - Chest pain [None]
  - Neutrophil count decreased [None]
  - Platelet count decreased [None]
  - White blood cell count decreased [None]
  - Anaemia [None]

NARRATIVE: CASE EVENT DATE: 20240119
